FAERS Safety Report 23671639 (Version 3)
Quarter: 2024Q1

REPORT INFORMATION
  Report Type: Spontaneous
  Country: FR (occurrence: FR)
  Receive Date: 20240326
  Receipt Date: 20240328
  Transmission Date: 20240410
  Serious: Yes (Hospitalization, Other)
  Sender: FDA-Public Use
  Company Number: FR-SA-2016SA154095

PATIENT
  Age: 48 Year
  Sex: Female
  Weight: 72 kg

DRUGS (14)
  1. ACETAMINOPHEN [Suspect]
     Active Substance: ACETAMINOPHEN
     Indication: Fibromyalgia
     Dosage: DOSE DESCRIPTION : UNK
     Route: 065
  2. CORTIZONE 10 EASY RELIEF [Suspect]
     Active Substance: HYDROCORTISONE
     Indication: Product used for unknown indication
     Dosage: 20 MG,QD
     Route: 065
  3. KETAMINE [Suspect]
     Active Substance: KETAMINE
     Indication: Fibromyalgia
     Dosage: DOSE DESCRIPTION : 50MG IN JULY 2014, OCTOBER 2014, NOVEMBER 2014
     Route: 041
     Dates: start: 201407, end: 201407
  4. KETAMINE [Suspect]
     Active Substance: KETAMINE
     Dosage: 50 MG, QMO
     Route: 041
     Dates: start: 201410, end: 201411
  5. KETAMINE [Suspect]
     Active Substance: KETAMINE
     Dosage: 70 MG, QMO
     Route: 041
     Dates: start: 201501, end: 201502
  6. KETAMINE [Suspect]
     Active Substance: KETAMINE
     Route: 041
     Dates: start: 201411
  7. KETAMINE [Suspect]
     Active Substance: KETAMINE
     Route: 041
     Dates: start: 201502
  8. KETAMINE [Suspect]
     Active Substance: KETAMINE
     Dosage: 50 MG, TIM
     Route: 041
     Dates: start: 201411
  9. KETAMINE [Suspect]
     Active Substance: KETAMINE
     Dosage: 70 MG, TIM
     Route: 041
     Dates: start: 201502
  10. ESOMEPRAZOLE [Suspect]
     Active Substance: ESOMEPRAZOLE
     Indication: Product used for unknown indication
     Dosage: DOSE DESCRIPTION : UNK
     Route: 048
  11. SKENAN [Suspect]
     Active Substance: MORPHINE SULFATE
     Indication: Product used for unknown indication
     Dosage: DOSE DESCRIPTION : 40 MG,BID
     Route: 048
  12. SKENAN [Suspect]
     Active Substance: MORPHINE SULFATE
     Dosage: DOSE DESCRIPTION : 80 MG, QD
     Route: 048
  13. LYRICA [Suspect]
     Active Substance: PREGABALIN
     Indication: Product used for unknown indication
     Dosage: 20 MG, QD
     Route: 048
     Dates: start: 201209, end: 20150101
  14. LERCANIDIPINE [Suspect]
     Active Substance: LERCANIDIPINE
     Indication: Product used for unknown indication
     Dosage: 10 MG, 1X/DAY
     Route: 065

REACTIONS (1)
  - Hepatic cytolysis [Recovered/Resolved]

NARRATIVE: CASE EVENT DATE: 20150323
